FAERS Safety Report 8464847-7 (Version None)
Quarter: 2012Q2

REPORT INFORMATION
  Report Type: 
  Country: None (occurrence: None)
  Receive Date: 20120618
  Receipt Date: 20120612
  Transmission Date: 20120825
  Serious: Yes (Other)
  Sender: FDA-Public Use
  Company Number: GER/GER/12/0024678

PATIENT
  Age: 26 Year
  Sex: Female

DRUGS (3)
  1. CLONAZEPAM [Suspect]
     Indication: EPILEPSY
     Dosage: 0.5 MG, 1 IN 1 D, ORAL
     Route: 048
     Dates: start: 20110414, end: 20120106
  2. LEVOTHYROXINE SODIUM [Concomitant]
  3. LAMOTRIGINE [Suspect]
     Indication: EPILEPSY
     Dosage: 75 MG, 1 IN 1 D, ORAL
     Route: 048
     Dates: start: 20110414, end: 20120106

REACTIONS (4)
  - VENTRICULAR SEPTAL DEFECT [None]
  - ATRIAL SEPTAL DEFECT [None]
  - CAESAREAN SECTION [None]
  - CEPHALO-PELVIC DISPROPORTION [None]
